FAERS Safety Report 24722144 (Version 2)
Quarter: 2025Q1

REPORT INFORMATION
  Report Type: Report from Study
  Country: JP (occurrence: JP)
  Receive Date: 20241211
  Receipt Date: 20250324
  Transmission Date: 20250409
  Serious: Yes (Life-Threatening, Other)
  Sender: ASTELLAS
  Company Number: JP-ASTELLAS-2024-AER-023518

PATIENT
  Age: 37 Year
  Sex: Male

DRUGS (7)
  1. GILTERITINIB [Suspect]
     Active Substance: GILTERITINIB
     Indication: Acute myeloid leukaemia recurrent
     Route: 065
  2. GILTERITINIB [Suspect]
     Active Substance: GILTERITINIB
     Route: 065
  3. GILTERITINIB [Suspect]
     Active Substance: GILTERITINIB
     Route: 065
  4. GILTERITINIB [Suspect]
     Active Substance: GILTERITINIB
     Route: 065
  5. CYTARABINE [Concomitant]
     Active Substance: CYTARABINE
     Indication: Acute myeloid leukaemia
     Route: 065
  6. CYTARABINE [Concomitant]
     Active Substance: CYTARABINE
     Route: 065
  7. IDARUBICIN [Concomitant]
     Active Substance: IDARUBICIN
     Indication: Acute myeloid leukaemia
     Route: 065

REACTIONS (7)
  - Sepsis [Unknown]
  - Transplant failure [Unknown]
  - Pneumonia [Unknown]
  - Pleural effusion [Unknown]
  - Pneumonia [Unknown]
  - Liver disorder [Unknown]
  - Infection [Unknown]
